FAERS Safety Report 7277968-1 (Version None)
Quarter: 2011Q1

REPORT INFORMATION
  Report Type: 
  Country: None (occurrence: None)
  Receive Date: 20110207
  Receipt Date: 20110201
  Transmission Date: 20110831
  Serious: Yes (Other)
  Sender: FDA-Public Use
  Company Number: JP-ROCHE-756689

PATIENT
  Sex: Male
  Weight: 55 kg

DRUGS (3)
  1. CALONAL [Suspect]
     Indication: PYREXIA
     Route: 048
     Dates: start: 20110122, end: 20110122
  2. TAMIFLU [Suspect]
     Indication: INFLUENZA
     Route: 048
     Dates: start: 20070316, end: 20070320
  3. TAMIFLU [Suspect]
     Route: 048
     Dates: start: 20110122, end: 20110122

REACTIONS (1)
  - ABNORMAL BEHAVIOUR [None]
